FAERS Safety Report 6859803-6 (Version None)
Quarter: 2010Q3

REPORT INFORMATION
  Report Type: 
  Country: None (occurrence: None)
  Receive Date: 20100720
  Receipt Date: 20100708
  Transmission Date: 20110219
  Serious: Yes (Hospitalization, Other)
  Sender: FDA-Public Use
  Company Number: US-BAYER-200935607NA

PATIENT
  Age: 35 Year
  Sex: Female
  Weight: 64 kg

DRUGS (1)
  1. YAZ [Suspect]
     Indication: ORAL CONTRACEPTION
     Route: 048
     Dates: start: 20060401, end: 20081201

REACTIONS (2)
  - CHOLECYSTITIS ACUTE [None]
  - PANCREATITIS [None]
